FAERS Safety Report 5206767-7 (Version None)
Quarter: 2006Q4

REPORT INFORMATION
  Report Type: 
  Country: None (occurrence: None)
  Receive Date: 20061031
  Receipt Date: 20060717
  Transmission Date: 20070319
  Serious: Yes (Other)
  Sender: FDA-Public Use
  Company Number: US200607003799

PATIENT
  Sex: Male

DRUGS (2)
  1. SYMBYAX [Suspect]
     Dosage: 12/25 MG
  2. WELLBUTRIN [Concomitant]

REACTIONS (1)
  - CONVULSION [None]
